FAERS Safety Report 10414752 (Version 1)
Quarter: 2014Q2

REPORT INFORMATION
  Report Type: Spontaneous
  Country: US (occurrence: None)
  Receive Date: 20140604
  Receipt Date: 20140604
  Transmission Date: 20141212
  Serious: No
  Sender: FDA-Public Use
  Company Number: 163-POMAL-14035293

PATIENT
  Age: 68 Year
  Sex: Male
  Weight: 86.2 kg

DRUGS (6)
  1. POMALYST (POMALIDOMIDE) (4 MILLIGRAM, CAPSULES) [Suspect]
     Indication: PLASMA CELL MYELOMA
     Route: 048
     Dates: start: 20130805
  2. DEXAMETHASONE [Concomitant]
  3. ECOTRIN (ACETYLSALICYIC) [Concomitant]
  4. MULTIVITAMINS [Concomitant]
  5. FENTANYL [Concomitant]
  6. VELCADE (BORTEZOMIB) [Concomitant]

REACTIONS (3)
  - Urinary tract infection [None]
  - Metapneumovirus infection [None]
  - Bronchitis [None]
